FAERS Safety Report 4869315-7 (Version None)
Quarter: 2005Q4

REPORT INFORMATION
  Report Type: 
  Country: None (occurrence: None)
  Receive Date: 20051230
  Receipt Date: 20050422
  Transmission Date: 20060501
  Serious: Yes (Hospitalization)
  Sender: FDA-Public Use
  Company Number: JP-NOVOPROD-243707

PATIENT
  Age: 44 Year
  Sex: Female

DRUGS (9)
  1. NORDITROPIN SIMPLEXX [Suspect]
     Indication: GROWTH HORMONE DEFICIENCY
     Dosage: 6.7 MG, QD
     Route: 058
     Dates: start: 20040818, end: 20050630
  2. LEVOTHYROXINE SODIUM [Concomitant]
     Dosage: 50 UG, QD
     Route: 048
     Dates: start: 20000101
  3. HYDROCORTISONE [Concomitant]
     Dosage: 5 MG, QD
     Route: 048
     Dates: start: 20000101
  4. DESMOPRESSIN ACETATE [Concomitant]
     Dosage: 20 UG, QD
     Route: 045
     Dates: start: 20000101
  5. PRAVASTATIN SODIUM [Concomitant]
     Dosage: 10 MG, QD
     Route: 048
     Dates: start: 20041208
  6. DICLOFENAC SODIUM [Concomitant]
     Dosage: 2 CAPS, QD
     Route: 048
     Dates: start: 20050101, end: 20050101
  7. FURSULTIAMINE [Concomitant]
     Dosage: 2 TAB, QD
     Route: 048
     Dates: start: 20050101, end: 20050101
  8. PLAUNOTOL [Concomitant]
     Dosage: 2 CAPS, QD
     Route: 048
     Dates: start: 20050101, end: 20050101
  9. FLURBIPROFEN [Concomitant]
     Dosage: UNK, PRN
     Dates: start: 20050101, end: 20050101

REACTIONS (1)
  - INTERVERTEBRAL DISC PROTRUSION [None]
